FAERS Safety Report 6630783-1 (Version None)
Quarter: 2010Q1

REPORT INFORMATION
  Report Type: 
  Country: None (occurrence: None)
  Receive Date: 20100311
  Receipt Date: 20100212
  Transmission Date: 20100710
  Serious: Yes (Other)
  Sender: FDA-Public Use
  Company Number: PHHY2010GB05124

PATIENT
  Sex: Male

DRUGS (1)
  1. EXJADE [Suspect]
     Indication: THALASSAEMIA
     Dosage: UNK

REACTIONS (5)
  - NEPHROLITHIASIS [None]
  - RASH [None]
  - RENAL COLIC [None]
  - SERUM FERRITIN INCREASED [None]
  - STENT PLACEMENT [None]
